FAERS Safety Report 6146849-9 (Version None)
Quarter: 2009Q2

REPORT INFORMATION
  Report Type: 
  Country: None (occurrence: None)
  Receive Date: 20090406
  Receipt Date: 20090406
  Transmission Date: 20091009
  Serious: Yes (Other)
  Sender: FDA-Public Use
  Company Number: None

PATIENT
  Sex: Male

DRUGS (7)
  1. LAMOTRIGINE [Suspect]
     Indication: BIPOLAR DISORDER
     Dosage: 1 TAB BY MOUTH AT BEDTIME
     Dates: start: 20090317, end: 20090320
  2. LORAZEPAM [Concomitant]
  3. PROVIGIL [Concomitant]
  4. TOPROL-XL [Concomitant]
  5. NEXIUM [Concomitant]
  6. RANITIDINE [Concomitant]
  7. AXERT [Concomitant]

REACTIONS (3)
  - BIPOLAR DISORDER [None]
  - DISEASE RECURRENCE [None]
  - HEADACHE [None]
